FAERS Safety Report 4287358-1 (Version None)
Quarter: 2004Q1

REPORT INFORMATION
  Report Type: 
  Country: None (occurrence: None)
  Receive Date: 20040209
  Receipt Date: 20030609
  Transmission Date: 20041129
  Serious: Yes (Hospitalization)
  Sender: FDA-Public Use
  Company Number: US-GLAXOSMITHKLINE-A0411588A

PATIENT
  Age: 64 Year
  Sex: Female

DRUGS (10)
  1. PAXIL CR [Suspect]
     Indication: DEPRESSION
     Dosage: 12.5MG PER DAY
     Route: 048
     Dates: start: 20030501
  2. LOPRESSOR [Suspect]
     Route: 065
  3. ATIVAN [Suspect]
     Indication: ANXIETY
     Dosage: 1MG TWICE PER DAY
     Route: 048
     Dates: start: 20030501
  4. ISOSORBIDE DINITRATE [Concomitant]
  5. CLONIDINE [Concomitant]
  6. IMDUR [Concomitant]
  7. NORVASC [Concomitant]
  8. GLUCOTROL XL [Concomitant]
  9. ASPIRIN [Concomitant]
     Dosage: 81MG PER DAY
  10. MONOPRIL [Concomitant]

REACTIONS (5)
  - ANXIETY [None]
  - BLOOD PRESSURE DECREASED [None]
  - HEART RATE DECREASED [None]
  - NAUSEA [None]
  - SOMNOLENCE [None]
